FAERS Safety Report 7037488-6 (Version None)
Quarter: 2010Q4

REPORT INFORMATION
  Report Type: 
  Country: None (occurrence: None)
  Receive Date: 20101011
  Receipt Date: 20101006
  Transmission Date: 20110411
  Serious: Yes (Hospitalization)
  Sender: FDA-Public Use
  Company Number: A0885229A

PATIENT
  Age: 43 Year
  Sex: Male

DRUGS (14)
  1. VENTOLIN [Suspect]
     Indication: ASTHMA
     Dosage: 1SPR AS REQUIRED
     Route: 055
  2. ADVAIR DISKUS 100/50 [Suspect]
     Indication: ASTHMA
     Dosage: 1PUFF TWICE PER DAY
     Route: 055
     Dates: start: 20091001
  3. NEXIUM [Concomitant]
  4. MAXALT [Concomitant]
  5. NASONEX [Concomitant]
  6. HYDROCHLOROTHIAZIDE [Concomitant]
  7. NORCO [Concomitant]
  8. UNSPECIFIED MEDICATION [Concomitant]
     Dosage: 2MG PER DAY
  9. CRESTOR [Concomitant]
     Dosage: 40MGD PER DAY
  10. KLONOPIN [Concomitant]
     Dosage: 2MG THREE TIMES PER DAY
  11. DIPROLENE [Concomitant]
  12. MULTI-VITAMIN [Concomitant]
  13. LOVAZA [Concomitant]
  14. GARLIC [Concomitant]

REACTIONS (2)
  - HEART RATE INCREASED [None]
  - UPPER RESPIRATORY TRACT INFECTION [None]
